FAERS Safety Report 6515678-6 (Version None)
Quarter: 2009Q4

REPORT INFORMATION
  Report Type: 
  Country: None (occurrence: None)
  Receive Date: 20091211
  Receipt Date: 20090116
  Transmission Date: 20100525
  Serious: Yes (Other)
  Sender: FDA-Public Use
  Company Number: 608855

PATIENT
  Age: 45 Year
  Sex: Male

DRUGS (1)
  1. VALIUM [Suspect]
     Indication: ANXIETY
     Dosage: 10 MG 4 PER DAY ORAL
     Route: 048
     Dates: start: 20000101

REACTIONS (1)
  - GRAND MAL CONVULSION [None]
